FAERS Safety Report 5229048-4 (Version None)
Quarter: 2007Q1

REPORT INFORMATION
  Report Type: 
  Country: None (occurrence: None)
  Receive Date: 20061201
  Receipt Date: 20060105
  Transmission Date: 20070707
  Serious: Yes (Hospitalization)
  Sender: FDA-Public Use
  Company Number: 2006-136708-NL

PATIENT
  Age: 52 Year
  Sex: Female
  Weight: 86.2 kg

DRUGS (1)
  1. NUVARING [Suspect]
     Indication: CONTRACEPTION
     Dosage: VAGINAL
     Route: 067
     Dates: start: 20040101, end: 20051002

REACTIONS (1)
  - DEEP VEIN THROMBOSIS [None]
